FAERS Safety Report 25513304 (Version 3)
Quarter: 2025Q3

REPORT INFORMATION
  Report Type: Spontaneous
  Country: AR (occurrence: AR)
  Receive Date: 20250703
  Receipt Date: 20250804
  Transmission Date: 20251021
  Serious: No
  Sender: PFIZER
  Company Number: AR-PFIZER INC-202500131684

PATIENT
  Age: 14 Year
  Sex: Female

DRUGS (2)
  1. GENOTROPIN [Suspect]
     Active Substance: SOMATROPIN
     Indication: Turner^s syndrome
     Dosage: 1.6 MG, DAILY
     Dates: start: 20250616
  2. GENOTROPIN [Suspect]
     Active Substance: SOMATROPIN
     Dates: start: 202506

REACTIONS (2)
  - Device breakage [Not Recovered/Not Resolved]
  - Drug dose omission by device [Not Recovered/Not Resolved]

NARRATIVE: CASE EVENT DATE: 20250626
